FAERS Safety Report 25892409 (Version 1)
Quarter: 2025Q4

REPORT INFORMATION
  Report Type: Spontaneous
  Country: US (occurrence: US)
  Receive Date: 20251007
  Receipt Date: 20251007
  Transmission Date: 20260117
  Serious: No
  Sender: SANOFI AVENTIS
  Company Number: US-SA-2025SA294087

PATIENT
  Age: 57 Year
  Sex: Female
  Weight: 63.039 kg

DRUGS (30)
  1. FABRAZYME [Suspect]
     Active Substance: AGALSIDASE BETA
     Indication: Fabry^s disease
     Dosage: 65 MG, QOW
     Route: 042
  2. SODIUM CHLORIDE [Concomitant]
     Active Substance: SODIUM CHLORIDE
  3. EPINEPHRINE [Concomitant]
     Active Substance: EPINEPHRINE
  4. STERILE WATER [Concomitant]
     Active Substance: WATER
  5. Severe cold + flu [Concomitant]
  6. ATORVASTATIN CALCIUM [Concomitant]
     Active Substance: ATORVASTATIN CALCIUM
  7. ALENDRONATE SODIUM [Concomitant]
     Active Substance: ALENDRONATE SODIUM
  8. NITROFURANTOIN [Concomitant]
     Active Substance: NITROFURANTOIN
  9. PREDNISONE [Concomitant]
     Active Substance: PREDNISONE
  10. CODEINE [Concomitant]
     Active Substance: CODEINE
  11. GUAIFENESIN [Concomitant]
     Active Substance: GUAIFENESIN
  12. HEPARIN [Concomitant]
     Active Substance: HEPARIN SODIUM
  13. SODIUM CHLORIDE [Concomitant]
     Active Substance: SODIUM CHLORIDE
     Route: 042
  14. MIRALAX [Concomitant]
     Active Substance: POLYETHYLENE GLYCOL 3350
  15. VITAMINS [Concomitant]
     Active Substance: VITAMINS
  16. STOOL SOFTENER (DOCUSATE) [Concomitant]
     Active Substance: DOCUSATE
  17. LIDOCAINE AND PRILOCAINE [Concomitant]
     Active Substance: LIDOCAINE\PRILOCAINE
  18. LATANOPROST [Concomitant]
     Active Substance: LATANOPROST
  19. ASPIRIN [Concomitant]
     Active Substance: ASPIRIN
  20. FLUDROCORTISONE ACETATE [Concomitant]
     Active Substance: FLUDROCORTISONE ACETATE
  21. VITAMIN D3 [Concomitant]
     Active Substance: CHOLECALCIFEROL
  22. TACROLIMUS [Concomitant]
     Active Substance: TACROLIMUS
  23. PROGESTERONE [Concomitant]
     Active Substance: PROGESTERONE
  24. SHINGRIX [Concomitant]
     Active Substance: RECOMBINANT VARICELLA ZOSTER VIRUS (VZV) GLYCOPROTEIN E
  25. MAGNESIUM [Concomitant]
     Active Substance: MAGNESIUM
  26. ONDANSETRON HYDROCHLORIDE [Concomitant]
     Active Substance: ONDANSETRON HYDROCHLORIDE
  27. AZELASTINE [Concomitant]
     Active Substance: AZELASTINE
  28. FLUTICASONE [Concomitant]
     Active Substance: FLUTICASONE
  29. ACETAMINOPHEN [Concomitant]
     Active Substance: ACETAMINOPHEN
  30. WARFARIN SODIUM [Concomitant]
     Active Substance: WARFARIN SODIUM

REACTIONS (2)
  - Back injury [Unknown]
  - Contusion [Unknown]

NARRATIVE: CASE EVENT DATE: 20250916
